FAERS Safety Report 18006415 (Version 1)
Quarter: 2020Q3

REPORT INFORMATION
  Report Type: Spontaneous
  Country: US (occurrence: US)
  Receive Date: 20200710
  Receipt Date: 20200710
  Transmission Date: 20201103
  Serious: Yes (Other)
  Sender: FDA-Public Use
  Company Number: None

PATIENT
  Age: 48 Year
  Sex: Female
  Weight: 117.2 kg

DRUGS (7)
  1. REMDESIVIR. [Suspect]
     Active Substance: REMDESIVIR
     Indication: COVID-19 PNEUMONIA
     Route: 042
     Dates: start: 20200703, end: 20200707
  2. DEXAMETHASONE 6MG IVP DAILY [Concomitant]
     Dates: start: 20200702, end: 20200709
  3. ALPRAZOLAM 0.25MG PO QHS PRN [Concomitant]
     Dates: start: 20200630, end: 20200709
  4. ASCORBIC ACID 500MG PO BID [Concomitant]
     Dates: start: 20200702, end: 20200709
  5. ZINC SULFATE 220MG PO DAILY [Concomitant]
     Dates: start: 20200702, end: 20200709
  6. CLONIDINE 0.1MG PO Q6H PRN [Concomitant]
     Dates: start: 20200630, end: 20200705
  7. TOCILIZUMAB IV 800MG ONCE [Concomitant]
     Dates: start: 20200702

REACTIONS (1)
  - Bradycardia [None]

NARRATIVE: CASE EVENT DATE: 20200705
